FAERS Safety Report 5685012-2 (Version None)
Quarter: 2008Q1

REPORT INFORMATION
  Report Type: 
  Country: None (occurrence: None)
  Receive Date: 20080328
  Receipt Date: 19970708
  Transmission Date: 20080703
  Serious: Yes (Death, Hospitalization, Other)
  Sender: FDA-Public Use
  Company Number: TR-ROCHE-83620

PATIENT
  Age: 67 Year
  Sex: Female

DRUGS (4)
  1. TICLID [Suspect]
     Indication: THROMBOSIS PROPHYLAXIS
     Route: 048
     Dates: start: 19970429, end: 19970513
  2. ADALAT [Concomitant]
     Route: 048
     Dates: start: 19970429, end: 19970513
  3. CORASPIN [Concomitant]
     Route: 048
     Dates: start: 19970421, end: 19970513
  4. PRAVACHOL [Concomitant]
     Route: 048
     Dates: start: 19970429, end: 19970513

REACTIONS (16)
  - ALANINE AMINOTRANSFERASE INCREASED [None]
  - APLASTIC ANAEMIA [None]
  - ASPARTATE AMINOTRANSFERASE INCREASED [None]
  - BLOOD ALKALINE PHOSPHATASE INCREASED [None]
  - BONE MARROW FAILURE [None]
  - CHOLESTASIS [None]
  - GAMMA-GLUTAMYLTRANSFERASE INCREASED [None]
  - HEPATIC FUNCTION ABNORMAL [None]
  - LEUKOPENIA [None]
  - MULTI-ORGAN DISORDER [None]
  - NEUTROPENIC SEPSIS [None]
  - PANCYTOPENIA [None]
  - PERIVASCULAR DERMATITIS [None]
  - PYREXIA [None]
  - RASH [None]
  - SEPTIC SHOCK [None]
